FAERS Safety Report 6929712-2 (Version None)
Quarter: 2010Q3

REPORT INFORMATION
  Report Type: 
  Country: None (occurrence: None)
  Receive Date: 20100813
  Receipt Date: 20100802
  Transmission Date: 20110219
  Serious: Yes (Hospitalization)
  Sender: FDA-Public Use
  Company Number: 2010MA001398

PATIENT
  Age: 87 Year
  Sex: Female

DRUGS (7)
  1. IBUPROFEN [Suspect]
     Indication: RHEUMATOID ARTHRITIS
     Dosage: 600 MG;QID;PO
     Route: 048
  2. LIVOSTIN [Concomitant]
  3. LORATADINE [Concomitant]
  4. FUROSEMID [Concomitant]
  5. KALEORID [Concomitant]
  6. PARACETAMOL [Concomitant]
  7. ATENOLOL [Concomitant]

REACTIONS (3)
  - GASTRIC ULCER [None]
  - HAEMOGLOBIN DECREASED [None]
  - OCCULT BLOOD POSITIVE [None]
